FAERS Safety Report 7916003-6 (Version None)
Quarter: 2011Q4

REPORT INFORMATION
  Report Type: 
  Country: None (occurrence: None)
  Receive Date: 20111115
  Receipt Date: 20111031
  Transmission Date: 20120403
  Serious: Yes (Death)
  Sender: FDA-Public Use
  Company Number: GR-WATSON-2011-19203

PATIENT
  Age: 69 Year
  Sex: Female

DRUGS (1)
  1. GEMCITABINE [Suspect]
     Indication: MALIGNANT FIBROUS HISTIOCYTOMA
     Dosage: UNK

REACTIONS (2)
  - DISEASE RECURRENCE [None]
  - MALIGNANT FIBROUS HISTIOCYTOMA [None]
